FAERS Safety Report 5658878-X (Version None)
Quarter: 2008Q1

REPORT INFORMATION
  Report Type: 
  Country: None (occurrence: None)
  Receive Date: 20080310
  Receipt Date: 20070430
  Transmission Date: 20080703
  Serious: No
  Sender: FDA-Public Use
  Company Number: US-BAYER-200711333BCC

PATIENT
  Sex: Female
  Weight: 85 kg

DRUGS (9)
  1. ALEVE [Suspect]
     Indication: PAIN
     Dosage: UNIT DOSE: 220 MG
     Route: 048
  2. ATENOLOL [Concomitant]
  3. ACCUPRIL [Concomitant]
  4. SYNTHROID [Concomitant]
  5. MACRODANTIN [Concomitant]
  6. ELAVIL [Concomitant]
  7. NEXIUM [Concomitant]
  8. AMBIEN [Concomitant]
  9. OROVITE [Concomitant]

REACTIONS (2)
  - INCREASED TENDENCY TO BRUISE [None]
  - RASH [None]
